FAERS Safety Report 15963093 (Version 1)
Quarter: 2019Q1

REPORT INFORMATION
  Report Type: Spontaneous
  Country: US (occurrence: US)
  Receive Date: 20190214
  Receipt Date: 20190214
  Transmission Date: 20190417
  Serious: Yes (Other)
  Sender: FDA-Public Use
  Company Number: US-SA-2019SA039640

PATIENT
  Sex: Female

DRUGS (2)
  1. ZOLPIDEM TARTRATE EXTENDED RELEASE - WINTHROP [Suspect]
     Active Substance: ZOLPIDEM TARTRATE
     Indication: TINNITUS
     Dosage: 12.5 MG
     Route: 065
  2. ZOLPIDEM TARTRATE EXTENDED RELEASE - WINTHROP [Suspect]
     Active Substance: ZOLPIDEM TARTRATE
     Indication: NIGHTMARE

REACTIONS (8)
  - Nervousness [Unknown]
  - Product dose omission [Unknown]
  - Dizziness [Unknown]
  - Drug resistance [Unknown]
  - Inability to afford medication [Unknown]
  - Drug dependence [Unknown]
  - Insomnia [Unknown]
  - Headache [Unknown]
